FAERS Safety Report 7739278-5 (Version None)
Quarter: 2011Q3

REPORT INFORMATION
  Report Type: 
  Country: None (occurrence: None)
  Receive Date: 20110909
  Receipt Date: 20110902
  Transmission Date: 20111222
  Serious: Yes (Hospitalization)
  Sender: FDA-Public Use
  Company Number: IT-JNJFOC-20110901592

PATIENT
  Age: 69 Year
  Sex: Male

DRUGS (2)
  1. TAMSULOSIN HYDROCHLORIDE [Concomitant]
     Indication: BENIGN PROSTATIC HYPERPLASIA
     Route: 065
  2. LEVOFLOXACIN [Suspect]
     Indication: CYSTITIS
     Route: 048
     Dates: start: 20110822, end: 20110823

REACTIONS (3)
  - HYPERHIDROSIS [None]
  - DIARRHOEA [None]
  - ASTHENIA [None]
